FAERS Safety Report 9280540 (Version 1)
Quarter: 2013Q2

REPORT INFORMATION
  Report Type: Spontaneous
  Country: FR (occurrence: FR)
  Receive Date: 20130509
  Receipt Date: 20130509
  Transmission Date: 20140414
  Serious: Yes (Life-Threatening)
  Sender: FDA-Public Use
  Company Number: FR-SANOFI-AVENTIS-2013SA045107

PATIENT
  Age: 67 Year
  Sex: Male

DRUGS (21)
  1. XATRAL LP [Suspect]
     Indication: PRODUCT USED FOR UNKNOWN INDICATION
     Route: 048
     Dates: start: 20130313, end: 20130316
  2. LYRICA [Suspect]
     Indication: PRODUCT USED FOR UNKNOWN INDICATION
     Route: 048
     Dates: start: 201010, end: 20130214
  3. LYRICA [Suspect]
     Indication: PRODUCT USED FOR UNKNOWN INDICATION
     Route: 048
     Dates: start: 20130304
  4. LYRICA [Suspect]
     Indication: PRODUCT USED FOR UNKNOWN INDICATION
     Route: 048
     Dates: start: 201303, end: 20130317
  5. TAVANIC [Concomitant]
     Indication: ARTHRITIS
     Route: 048
     Dates: start: 20130104, end: 20130308
  6. ORBENINE [Concomitant]
     Indication: ARTHRITIS
     Route: 042
     Dates: start: 20130104, end: 20130308
  7. TIENAM [Concomitant]
     Dosage: POWDER FOR PERFUSION
     Route: 042
     Dates: start: 20130314, end: 20130317
  8. AMIKLIN [Concomitant]
     Route: 048
     Dates: start: 20130208, end: 20130314
  9. CYMBALTA [Concomitant]
     Route: 048
     Dates: start: 20130311, end: 20130317
  10. CEFOTAXIME [Concomitant]
     Route: 042
     Dates: start: 20130308, end: 20130314
  11. FLAGYL [Concomitant]
     Route: 042
     Dates: start: 20130312, end: 20130314
  12. COAPROVEL [Concomitant]
     Route: 048
  13. TRIATEC [Concomitant]
     Route: 048
  14. LASILIX [Concomitant]
     Route: 065
  15. ZANIDIP [Concomitant]
     Route: 065
  16. HYPERIUM [Concomitant]
     Route: 065
  17. DIFFU K [Concomitant]
     Route: 065
  18. MOPRAL [Concomitant]
     Route: 065
  19. ALDACTONE [Concomitant]
     Route: 065
     Dates: start: 201301
  20. IMOVANE [Concomitant]
     Route: 065
     Dates: start: 201301
  21. NEURONTIN [Concomitant]
     Route: 065
     Dates: start: 20130215, end: 20130222

REACTIONS (9)
  - Cardio-respiratory arrest [Recovered/Resolved]
  - Electrocardiogram QT prolonged [Recovering/Resolving]
  - Arthritis bacterial [None]
  - Leg amputation [None]
  - Ventricular tachycardia [None]
  - Aortic valve calcification [None]
  - Left atrial dilatation [None]
  - Hypokalaemia [None]
  - Torsade de pointes [None]
